FAERS Safety Report 18291339 (Version 1)
Quarter: 2020Q3

REPORT INFORMATION
  Report Type: Spontaneous
  Country: FR (occurrence: FR)
  Receive Date: 20200922
  Receipt Date: 20200922
  Transmission Date: 20201103
  Serious: Yes (Hospitalization, Other)
  Sender: FDA-Public Use
  Company Number: FR-SUN PHARMACEUTICAL INDUSTRIES LTD-2020RR-261166

PATIENT
  Age: 29 Year
  Sex: Female
  Weight: 54 kg

DRUGS (1)
  1. PARACETAMOL [Suspect]
     Active Substance: ACETAMINOPHEN
     Indication: PRODUCT USED FOR UNKNOWN INDICATION
     Dosage: IN TOTAL
     Route: 048
     Dates: start: 20200523, end: 20200523

REACTIONS (5)
  - Hepatitis fulminant [Recovered/Resolved with Sequelae]
  - Hepatic encephalopathy [Recovered/Resolved]
  - Intentional overdose [Recovered/Resolved with Sequelae]
  - Suicide attempt [Unknown]
  - Acute hepatic failure [Recovered/Resolved with Sequelae]

NARRATIVE: CASE EVENT DATE: 20200524
